FAERS Safety Report 16940886 (Version 2)
Quarter: 2019Q4

REPORT INFORMATION
  Report Type: Spontaneous
  Country: US (occurrence: US)
  Receive Date: 20191021
  Receipt Date: 20191025
  Transmission Date: 20200122
  Serious: Yes (Other)
  Sender: FDA-Public Use
  Company Number: US-HORIZON-PRE-0457-2019

PATIENT
  Age: 53 Year
  Sex: Female

DRUGS (2)
  1. PREDNISONE. [Suspect]
     Active Substance: PREDNISONE
     Indication: CARDIAC SARCOIDOSIS
     Dosage: 20MG DAILY; INCREASED TO 30MG DAILY
  2. MEXILETINE [Concomitant]
     Active Substance: MEXILETINE

REACTIONS (1)
  - Ventricular extrasystoles [Recovered/Resolved]
